FAERS Safety Report 8911933 (Version 2)
Quarter: 2012Q4

REPORT INFORMATION
  Report Type: 
  Country: DE (occurrence: US)
  Receive Date: 20121116
  Receipt Date: 20121128
  Transmission Date: 20130627
  Serious: Yes (Death, Hospitalization, Other)
  Sender: FDA-Public Use
  Company Number: US-GENZYME-LEUK-1000208

PATIENT
  Age: 69 None
  Sex: Male
  Weight: 76.19 kg

DRUGS (4)
  1. LEUKINE [Suspect]
     Indication: LEUKOPENIA
     Dosage: 500 mcg, qd
     Route: 042
     Dates: start: 20110909, end: 20120309
  2. ELOXATIN [Concomitant]
     Indication: PRODUCT USED FOR UNKNOWN INDICATION
     Dosage: UNK
     Route: 065
  3. FLUOROURACIL [Concomitant]
     Indication: PRODUCT USED FOR UNKNOWN INDICATION
     Dosage: UNK
     Route: 065
  4. LEUCOVORINE [Concomitant]
     Indication: PRODUCT USED FOR UNKNOWN INDICATION
     Dosage: UNK
     Route: 065

REACTIONS (15)
  - Chronic obstructive pulmonary disease [Fatal]
  - Sepsis [Fatal]
  - Colon cancer metastatic [Fatal]
  - Platelet count decreased [Unknown]
  - Blood glucose increased [Unknown]
  - White blood cell count decreased [Recovered/Resolved]
  - Dyspnoea [Unknown]
  - White blood cell count decreased [Unknown]
  - Aspartate aminotransferase increased [Unknown]
  - Haemoglobin decreased [Unknown]
  - Blood calcium decreased [Unknown]
  - Blood albumin decreased [Unknown]
  - Blood urea increased [Unknown]
  - Alanine aminotransferase increased [Unknown]
  - Monocyte count decreased [Recovered/Resolved]
